FAERS Safety Report 18735278 (Version 1)
Quarter: 2021Q1

REPORT INFORMATION
  Report Type: Spontaneous
  Country: US (occurrence: US)
  Receive Date: 20210113
  Receipt Date: 20210113
  Transmission Date: 20210419
  Serious: No
  Sender: FDA-Public Use
  Company Number: None

PATIENT
  Age: 27 Year
  Sex: Female

DRUGS (1)
  1. COPAXONE [Suspect]
     Active Substance: GLATIRAMER ACETATE
     Dosage: FREQUENCY: OTHER
     Route: 058
     Dates: start: 202012, end: 202101

REACTIONS (4)
  - Injection site swelling [None]
  - Urticaria [None]
  - Exposure during pregnancy [None]
  - Injection site warmth [None]

NARRATIVE: CASE EVENT DATE: 20201228
